FAERS Safety Report 24968135 (Version 1)
Quarter: 2025Q1

REPORT INFORMATION
  Report Type: Spontaneous
  Country: US (occurrence: US)
  Receive Date: 20250214
  Receipt Date: 20250214
  Transmission Date: 20250409
  Serious: Yes (Other)
  Sender: REGENERON
  Company Number: US-REGENERON PHARMACEUTICALS, INC.-2025-030591

PATIENT
  Sex: Female

DRUGS (2)
  1. PRALUENT [Suspect]
     Active Substance: ALIROCUMAB
     Indication: Hypercholesterolaemia
     Dosage: 150 MG, Q2W
     Route: 058
  2. MOUNJARO [Concomitant]
     Active Substance: TIRZEPATIDE
     Indication: Product used for unknown indication
     Route: 065
     Dates: end: 20250201

REACTIONS (16)
  - Leukoplakia oral [Unknown]
  - Stomatitis [Unknown]
  - Dry mouth [Unknown]
  - Swelling face [Unknown]
  - Oral pain [Unknown]
  - Dry throat [Unknown]
  - Ageusia [Unknown]
  - Tongue rough [Unknown]
  - Plicated tongue [Unknown]
  - Tongue disorder [Unknown]
  - Candida infection [Unknown]
  - Infection [Unknown]
  - Stomatitis [Unknown]
  - Tongue rough [Unknown]
  - Swelling face [Unknown]
  - Mouth swelling [Unknown]

NARRATIVE: CASE EVENT DATE: 20240101
